FAERS Safety Report 6175891-7 (Version None)
Quarter: 2009Q2

REPORT INFORMATION
  Report Type: 
  Country: None (occurrence: None)
  Receive Date: 20090501
  Receipt Date: 20090419
  Transmission Date: 20091009
  Serious: Yes (Hospitalization, Disabling, Other)
  Sender: FDA-Public Use
  Company Number: US-PFIZER INC-2009203173

PATIENT
  Sex: Female
  Weight: 63.492 kg

DRUGS (3)
  1. CHANTIX [Suspect]
     Indication: SMOKING CESSATION THERAPY
     Dosage: FREQUENCY: EVERY DAY;
     Dates: start: 20070101
  2. QUETIAPINE [Suspect]
     Indication: SLEEP DISORDER
  3. NAPROXEN [Concomitant]
     Dosage: UNK

REACTIONS (13)
  - BIPOLAR DISORDER [None]
  - CARDIAC DISORDER [None]
  - CONFUSIONAL STATE [None]
  - CONVULSION [None]
  - DELUSION [None]
  - DISABILITY [None]
  - DISTURBANCE IN ATTENTION [None]
  - HALLUCINATION [None]
  - LOSS OF CONSCIOUSNESS [None]
  - NERVOUS SYSTEM DISORDER [None]
  - SLEEP DISORDER [None]
  - SUICIDE ATTEMPT [None]
  - VISUAL IMPAIRMENT [None]
